FAERS Safety Report 5769050-7 (Version None)
Quarter: 2008Q2

REPORT INFORMATION
  Report Type: 
  Country: None (occurrence: None)
  Receive Date: 20080610
  Receipt Date: 20080529
  Transmission Date: 20081010
  Serious: Yes (Other)
  Sender: FDA-Public Use
  Company Number: GXKR2008JP04902

PATIENT
  Age: 33 Year
  Sex: Female

DRUGS (2)
  1. IRINOTECAN (NGX) (IRINOTECAN) INJECTION [Suspect]
     Indication: CERVIX CARCINOMA
     Dosage: 5 DOSES, TOTAL DOSE 730 MG, INJECTION NOS
  2. MITOMYCIN [Concomitant]

REACTIONS (1)
  - OVARIAN DISORDER [None]
